FAERS Safety Report 12642841 (Version 6)
Quarter: 2018Q1

REPORT INFORMATION
  Report Type: Spontaneous
  Country: US (occurrence: US)
  Receive Date: 20160811
  Receipt Date: 20180130
  Transmission Date: 20180508
  Serious: Yes (Hospitalization, Congenital Anomaly, Other)
  Sender: FDA-Public Use
  Company Number: PHHY2015US133752

PATIENT
  Sex: Female

DRUGS (1)
  1. ZOFRAN [Suspect]
     Active Substance: ONDANSETRON HYDROCHLORIDE
     Indication: FOETAL EXPOSURE DURING PREGNANCY
     Dosage: MOTHER^S DOSE: 4 MG, UNK
     Route: 064

REACTIONS (40)
  - Supraventricular extrasystoles [Unknown]
  - Bradycardia [Unknown]
  - Bradycardia foetal [Unknown]
  - Pulmonary oedema [Unknown]
  - Foetal exposure during pregnancy [Unknown]
  - Constipation [Unknown]
  - Pulmonary valve incompetence [Unknown]
  - Right atrial enlargement [Unknown]
  - Hypocalcaemia [Unknown]
  - Anomalous pulmonary venous connection [Unknown]
  - Ventricular septal defect [Unknown]
  - Right ventricular hypertrophy [Unknown]
  - Right aortic arch [Unknown]
  - Cardiac murmur [Unknown]
  - Conjunctivitis [Unknown]
  - Hyponatraemia [Unknown]
  - Sinus node dysfunction [Unknown]
  - Chronic tonsillitis [Unknown]
  - Conduction disorder [Unknown]
  - Patent ductus arteriosus [Unknown]
  - Pulmonary valve stenosis congenital [Unknown]
  - Apnoea [Unknown]
  - Skin lesion [Unknown]
  - Neonatal respiratory distress syndrome [Recovering/Resolving]
  - Atelectasis neonatal [Unknown]
  - Cyanosis neonatal [Unknown]
  - Funisitis [Unknown]
  - Rhinitis allergic [Unknown]
  - Hypoglycaemia [Unknown]
  - Otitis media [Unknown]
  - Atrial septal defect [Unknown]
  - Cardiomegaly [Unknown]
  - Anaemia [Unknown]
  - Dermatitis diaper [Unknown]
  - Premature baby [Unknown]
  - Streptococcal infection [Unknown]
  - Molluscum contagiosum [Unknown]
  - Heart disease congenital [Unknown]
  - Pneumonia [Unknown]
  - Upper respiratory tract infection [Unknown]
